FAERS Safety Report 17071566 (Version 1)
Quarter: 2019Q4

REPORT INFORMATION
  Report Type: Spontaneous
  Country: CA (occurrence: CA)
  Receive Date: 20191125
  Receipt Date: 20191125
  Transmission Date: 20200122
  Serious: Yes (Other)
  Sender: FDA-Public Use
  Company Number: CA-AMERICAN REGENT INC-2019002326

PATIENT
  Age: 20 Year
  Sex: Female

DRUGS (1)
  1. VENOFER [Suspect]
     Active Substance: IRON SUCROSE
     Indication: BLOOD IRON DECREASED
     Dosage: 300 MILLIGRAM, SINGLE
     Route: 042
     Dates: start: 20190531, end: 20190531

REACTIONS (7)
  - Asthenia [Unknown]
  - Back pain [Unknown]
  - Malaise [Unknown]
  - Paraesthesia [Unknown]
  - Hypotension [Unknown]
  - Gait disturbance [Unknown]
  - Syncope [Recovered/Resolved]

NARRATIVE: CASE EVENT DATE: 20190531
